FAERS Safety Report 5247238-1 (Version None)
Quarter: 2007Q1

REPORT INFORMATION
  Report Type: 
  Country: None (occurrence: None)
  Receive Date: 20070223
  Receipt Date: 20070223
  Transmission Date: 20070707
  Serious: Yes (Hospitalization, Other)
  Sender: FDA-Public Use
  Company Number: None

PATIENT
  Age: 76 Year
  Sex: Female
  Weight: 60.8 kg

DRUGS (19)
  1. DAPTOMYCIN 500 MG CUBIST PHARMACEUTICALS [Suspect]
     Indication: ABDOMINAL ABSCESS
     Dosage: 240MG  DAILY  IV BOLUS
     Route: 040
     Dates: start: 20060831, end: 20060914
  2. LINEZOLID [Suspect]
     Indication: ABDOMINAL ABSCESS
     Dosage: 600MG  TWICE DAILY  PO
     Route: 048
     Dates: start: 20060723, end: 20060830
  3. METRONIDAZOLE [Concomitant]
  4. LEVOFLOXACIN [Concomitant]
  5. MICAFUNGIN [Concomitant]
  6. MORPHINE [Concomitant]
  7. BOSENTAN [Concomitant]
  8. FERROUS SULFATE WITH VITAMIN C [Concomitant]
  9. ONDANDESTRON [Concomitant]
  10. PROMETHAZINE [Concomitant]
  11. ZOLPIDEM TARTRATE [Concomitant]
  12. DIGOXIN [Concomitant]
  13. CARDIZEM CD [Concomitant]
  14. HYDROCORTISONE [Concomitant]
  15. LEVOTHROXINE [Concomitant]
  16. ZAROXOLYN [Concomitant]
  17. ESOMEPRAZOLE MAGNESIUM [Concomitant]
  18. ERYTHROPOETIN [Concomitant]
  19. CHOLCHICINE [Concomitant]

REACTIONS (2)
  - BURNING SENSATION [None]
  - PARAESTHESIA [None]
